FAERS Safety Report 7107490-4 (Version None)
Quarter: 2010Q4

REPORT INFORMATION
  Report Type: 
  Country: None (occurrence: None)
  Receive Date: 20101018
  Receipt Date: 20090901
  Transmission Date: 20110411
  Serious: No
  Sender: FDA-Public Use
  Company Number: US-WYE-H10168309

PATIENT
  Age: 47 Year
  Sex: Female

DRUGS (4)
  1. PREMARIN [Suspect]
     Dosage: 0.625 MG DAILY, ORAL
     Route: 048
     Dates: start: 20090713, end: 20090717
  2. WELLBUTRIN XL [Concomitant]
  3. GABAPENTIN [Concomitant]
  4. VICODIN [Concomitant]

REACTIONS (1)
  - MEDICATION RESIDUE [None]
